FAERS Safety Report 13953884 (Version 1)
Quarter: 2017Q3

REPORT INFORMATION
  Report Type: Spontaneous
  Country: US (occurrence: US)
  Receive Date: 20170911
  Receipt Date: 20170911
  Transmission Date: 20171128
  Serious: No
  Sender: FDA-Public Use
  Company Number: US-TEVA-741280USA

PATIENT
  Sex: Female

DRUGS (2)
  1. VENLAFAXINE [Suspect]
     Active Substance: VENLAFAXINE HYDROCHLORIDE
     Indication: DEPRESSION
     Dosage: 12.5 MILLIGRAM DAILY;
     Route: 048
     Dates: start: 20170128
  2. VENLAFAXINE [Suspect]
     Active Substance: VENLAFAXINE HYDROCHLORIDE
     Dosage: 25 MILLIGRAM DAILY; TAKE WHOLE FOR NEXT 3 DAYS AS INSTRUCTED BY PHYSICIAN
     Route: 048
     Dates: start: 20170213, end: 20170216

REACTIONS (7)
  - Depression [Not Recovered/Not Resolved]
  - Wrong technique in product usage process [Unknown]
  - Drug effect incomplete [Not Recovered/Not Resolved]
  - Nausea [Unknown]
  - Gastrointestinal pain [Unknown]
  - Eructation [Unknown]
  - Abdominal distension [Unknown]

NARRATIVE: CASE EVENT DATE: 20170128
